FAERS Safety Report 21584454 (Version 2)
Quarter: 2023Q1

REPORT INFORMATION
  Report Type: Spontaneous
  Country: US (occurrence: US)
  Receive Date: 20221111
  Receipt Date: 20230212
  Transmission Date: 20230418
  Serious: No
  Sender: FDA-Public Use
  Company Number: US-VIIV HEALTHCARE LIMITED-US2022AMR160824

PATIENT
  Sex: Male
  Weight: 77 kg

DRUGS (14)
  1. CABENUVA [Suspect]
     Active Substance: CABOTEGRAVIR\RILPIVIRINE
     Indication: HIV infection
     Dosage: UNK, UNK Z EVERY MONTH 600/900 MG
     Route: 030
     Dates: start: 20220504
  2. CABENUVA [Suspect]
     Active Substance: CABOTEGRAVIR\RILPIVIRINE
  3. CABENUVA [Suspect]
     Active Substance: CABOTEGRAVIR\RILPIVIRINE
  4. CABENUVA [Suspect]
     Active Substance: CABOTEGRAVIR\RILPIVIRINE
     Indication: HIV infection
     Dosage: UNK UNK, Z:EVERY MONTH 600/900 MG
     Route: 030
     Dates: start: 20220601
  5. CABENUVA [Suspect]
     Active Substance: CABOTEGRAVIR\RILPIVIRINE
     Dosage: UNK UNK, Z:EVERY MONTH 600/900 MG
     Route: 030
     Dates: start: 20221026
  6. CABENUVA [Suspect]
     Active Substance: CABOTEGRAVIR\RILPIVIRINE
     Indication: HIV infection
     Dosage: UNK UNK, Z: EVERY MONTH 600/900 MG
     Route: 030
     Dates: start: 20220702
  7. CABENUVA [Suspect]
     Active Substance: CABOTEGRAVIR\RILPIVIRINE
     Dosage: UNK UNK, Z: EVERY MONTH 600/900 MG
     Route: 030
     Dates: start: 20220801
  8. CABENUVA [Suspect]
     Active Substance: CABOTEGRAVIR\RILPIVIRINE
     Dosage: UNK UNK, Z: EVERY MONTH 600/900 MG
     Route: 030
     Dates: start: 20220830
  9. CABENUVA [Suspect]
     Active Substance: CABOTEGRAVIR\RILPIVIRINE
     Indication: HIV infection
     Dosage: UNK UNK, Z: EVERY MONTH 600/900 MG
     Route: 030
     Dates: start: 20220929
  10. CABENUVA [Suspect]
     Active Substance: CABOTEGRAVIR\RILPIVIRINE
     Indication: HIV infection
     Dosage: UNK UNK, Z: EVERY MONTH 600/900 MG
     Route: 030
     Dates: start: 20221122
  11. VOCABRIA [Concomitant]
     Active Substance: CABOTEGRAVIR SODIUM
     Indication: HIV infection
     Dosage: 30 MG, QD
     Route: 048
     Dates: start: 20220405
  12. NIFEDIPINE [Concomitant]
     Active Substance: NIFEDIPINE
     Indication: Product used for unknown indication
     Dosage: UNK
  13. EDURANT [Concomitant]
     Active Substance: RILPIVIRINE HYDROCHLORIDE
     Indication: HIV infection
     Dosage: 25 MG, QD
     Route: 048
     Dates: start: 20220405
  14. SPIRONOLACTONE [Concomitant]
     Active Substance: SPIRONOLACTONE
     Indication: Product used for unknown indication
     Dosage: UNK

REACTIONS (3)
  - Viral load increased [Unknown]
  - Inappropriate schedule of product administration [Unknown]
  - Product administration error [Unknown]

NARRATIVE: CASE EVENT DATE: 20220101
